FAERS Safety Report 21868845 (Version 1)
Quarter: 2023Q1

REPORT INFORMATION
  Report Type: Spontaneous
  Country: US (occurrence: US)
  Receive Date: 20230117
  Receipt Date: 20230117
  Transmission Date: 20230417
  Serious: No
  Sender: FDA-Public Use
  Company Number: US-TEVA-2023-US-2845121

PATIENT
  Sex: Male

DRUGS (1)
  1. QVAR REDIHALER [Suspect]
     Active Substance: BECLOMETHASONE DIPROPIONATE
     Indication: Product used for unknown indication
     Dosage: INHALATION - AEROSOL, 80 MCG

REACTIONS (4)
  - Dyspnoea [Unknown]
  - Device issue [Unknown]
  - Device delivery system issue [Unknown]
  - Product residue present [Unknown]

NARRATIVE: CASE EVENT DATE: 20221201
